FAERS Safety Report 4440752-8 (Version None)
Quarter: 2004Q3

REPORT INFORMATION
  Report Type: 
  Country: None (occurrence: None)
  Receive Date: 20040903
  Receipt Date: 20040713
  Transmission Date: 20050211
  Serious: Yes (Death)
  Sender: FDA-Public Use
  Company Number: PHEH2004US07465

PATIENT
  Age: 24 Year
  Sex: Female
  Weight: 83 kg

DRUGS (5)
  1. CLOZARIL [Suspect]
     Dosage: 75 MG, BID
     Route: 048
     Dates: start: 20040524, end: 20040618
  2. DEPAKOTE [Concomitant]
  3. KLONOPIN [Concomitant]
  4. GEODON [Concomitant]
  5. ABILIFY [Concomitant]

REACTIONS (5)
  - ACCIDENT [None]
  - ELECTROCARDIOGRAM ABNORMAL [None]
  - LETHARGY [None]
  - NAUSEA [None]
  - TACHYCARDIA [None]
